FAERS Safety Report 4846208-2 (Version None)
Quarter: 2005Q4

REPORT INFORMATION
  Report Type: 
  Country: None (occurrence: None)
  Receive Date: 20051129
  Receipt Date: 20051118
  Transmission Date: 20060501
  Serious: Yes (Hospitalization)
  Sender: FDA-Public Use
  Company Number: CHWYE153518NOV05

PATIENT
  Age: 64 Year
  Sex: Male

DRUGS (20)
  1. RAPAMUNE [Suspect]
     Indication: LUNG TRANSPLANT
     Dosage: ORAL
     Route: 048
     Dates: start: 20040101, end: 20041101
  2. AREDIA [Suspect]
     Indication: OSTEOPOROSIS
     Dosage: 1 DOSE 4X PER 1 YR  ORAL
     Route: 048
     Dates: start: 20030701
  3. CELLCEPT [Suspect]
     Indication: LUNG TRANSPLANT
     Dosage: 500 MG 3X PER 1 DAY ORAL
     Route: 048
     Dates: start: 20040101
  4. NEBIVOLOL HCL [Suspect]
     Indication: HYPERTENSION
     Dosage: 5 MG 1X PER 1 DAY ORAL
     Route: 048
  5. PREDNISONE [Suspect]
     Dosage: 7.5 MG 1X PER 1 DAY
  6. PROGRAF [Suspect]
     Indication: LUNG TRANSPLANT
     Dosage: 0.5 MG 2X PER 1 DAY ORAL
     Route: 048
     Dates: start: 20041101
  7. DIFLUCAN (FLUCONAZOLE) [Concomitant]
  8. CALCIUM (CALCIUM) [Concomitant]
  9. MAGNESIOCARD (MAGNESIUM ASPARTATE HYDROCHLORIDE) [Concomitant]
  10. ROCALTROL [Concomitant]
  11. NEXIUM [Concomitant]
  12. FOLIC ACID [Concomitant]
  13. ZITHROMAX [Concomitant]
  14. METOLAZONE [Concomitant]
  15. TARGOCID [Concomitant]
  16. MARCUMAR [Concomitant]
  17. LASIX [Concomitant]
  18. RECORMON (ERYTHROPOIETIN HUMAN) [Concomitant]
  19. ATROVENT [Concomitant]
  20. COLISTIN (COLISTIN) [Concomitant]

REACTIONS (10)
  - ATRIAL FIBRILLATION [None]
  - CARDIAC FAILURE [None]
  - CONGESTIVE CARDIOMYOPATHY [None]
  - DRUG INEFFECTIVE [None]
  - DRUG INTERACTION [None]
  - MITRAL VALVE INCOMPETENCE [None]
  - MYOCARDIAL INFARCTION [None]
  - TRANSPLANT REJECTION [None]
  - VENTRICULAR HYPERTROPHY [None]
  - VENTRICULAR HYPOKINESIA [None]
